FAERS Safety Report 6691229-0 (Version None)
Quarter: 2010Q2

REPORT INFORMATION
  Report Type: 
  Country: None (occurrence: None)
  Receive Date: 20100422
  Receipt Date: 20100412
  Transmission Date: 20101027
  Serious: No
  Sender: FDA-Public Use
  Company Number: US-BIOGENIDEC-2010BI012079

PATIENT
  Sex: Female

DRUGS (7)
  1. AVONEX [Suspect]
     Indication: MULTIPLE SCLEROSIS
     Route: 030
     Dates: start: 20090212
  2. ALEVE (CAPLET) [Concomitant]
     Indication: ARTHRITIS
     Dates: start: 20091101
  3. ALEVE (CAPLET) [Concomitant]
     Indication: SPONDYLITIS
     Dates: start: 20091101
  4. IBUPROFEN [Concomitant]
     Indication: ARTHRITIS
     Dates: start: 20091101
  5. IBUPROFEN [Concomitant]
     Indication: SPONDYLITIS
     Dates: start: 20091101
  6. VICODIN [Concomitant]
     Indication: ARTHRITIS
     Dates: start: 20091101
  7. VICODIN [Concomitant]
     Indication: SPONDYLITIS
     Dates: start: 20091101

REACTIONS (4)
  - ANKLE FRACTURE [None]
  - CHOKING [None]
  - COUGH [None]
  - JOINT DISLOCATION [None]
